FAERS Safety Report 16917160 (Version 1)
Quarter: 2019Q4

REPORT INFORMATION
  Report Type: Spontaneous
  Country: US (occurrence: US)
  Receive Date: 20191015
  Receipt Date: 20191015
  Transmission Date: 20200122
  Serious: No
  Sender: FDA-Public Use
  Company Number: US-TEVA-2019-US-1120324

PATIENT
  Sex: Female

DRUGS (1)
  1. TRI-LO-SPRINTEC [Suspect]
     Active Substance: ETHINYL ESTRADIOL\NORGESTIMATE
     Dosage: NORGESTIMATE 0.18, 0.215, 0.250 ETHINYLESTRADIOL 0.25, 0.035.
     Route: 065

REACTIONS (2)
  - Emotional disorder [Unknown]
  - Anxiety [Unknown]
